FAERS Safety Report 9060108 (Version 1)
Quarter: 2013Q1

REPORT INFORMATION
  Report Type: Spontaneous
  Country: US (occurrence: US)
  Receive Date: 20130212
  Receipt Date: 20130212
  Transmission Date: 20140127
  Serious: Yes (Hospitalization)
  Sender: FDA-Public Use
  Company Number: US-BAYER-2013-015708

PATIENT
  Age: 25 Year
  Sex: Female

DRUGS (4)
  1. YASMIN [Suspect]
     Indication: CONTRACEPTION
  2. ACCUTANE [Concomitant]
  3. DESONIDE [Concomitant]
  4. MOXIFLOXACIN [Concomitant]

REACTIONS (1)
  - Pulmonary embolism [Recovered/Resolved]
